FAERS Safety Report 9698414 (Version 2)
Quarter: 2013Q4

REPORT INFORMATION
  Report Type: Spontaneous
  Country: US (occurrence: US)
  Receive Date: 20131120
  Receipt Date: 20131211
  Transmission Date: 20140711
  Serious: Yes (Hospitalization)
  Sender: FDA-Public Use
  Company Number: US-BAXTER-2013BAX045433

PATIENT
  Sex: Female

DRUGS (4)
  1. DIANEAL LOW CALCIUM [Suspect]
     Indication: PERITONEAL DIALYSIS
     Route: 033
  2. DIANEAL LOW CALCIUM [Suspect]
     Indication: PERITONEAL DIALYSIS
     Route: 033
  3. VANCOMYCIN [Suspect]
     Indication: PERITONITIS
     Route: 033
  4. GENTAMYCIN [Suspect]
     Indication: PERITONITIS
     Route: 033

REACTIONS (2)
  - Peritonitis [Recovering/Resolving]
  - Peritoneal dialysis complication [Unknown]
